FAERS Safety Report 9626957 (Version 1)
Quarter: 2013Q4

REPORT INFORMATION
  Report Type: Spontaneous
  Country: US (occurrence: None)
  Receive Date: 20131011
  Receipt Date: 20131011
  Transmission Date: 20140711
  Serious: Yes (Hospitalization)
  Sender: FDA-Public Use
  Company Number: 201310-US-001452

PATIENT
  Age: 71 Year
  Sex: Female
  Weight: 46.27 kg

DRUGS (10)
  1. FLEET PHOSPHO-SODA [Suspect]
     Indication: COLONOSCOPY
     Route: 048
     Dates: start: 20030928, end: 20030928
  2. HCTZ (HYDROCHLOROTHIAZIDE) [Concomitant]
  3. NORVASC (AMLODIPINE BESILATE) [Concomitant]
  4. ACTONEL (RISEDRONATE SODIUM) [Concomitant]
  5. COLACE [Concomitant]
  6. DIOVAN (VALSARTAN) [Concomitant]
  7. LIPITOR (ATORVASTATIN CALCIUM) [Concomitant]
  8. CALTRATE (COLECALCIFEROL, CALCIUM CARBONATE) [Concomitant]
  9. CENTRUM SILVER (ASCORBIC ACID, PYRIDOXINE HYDROCHLORIDE, BIOTIN, TOCOPHEROL, FOLIC ACID, THIAMINE HYDROCHLORIDE, COLECALCIFEROL, CYANOCOBALAMIN, RETINOL, RITOFLAVIN, PHYTOMENADIONE, NICOTINAMIDE, CALCIUM PANTOTHENATE, IRON, MAGNESIUM, MANGENESE, MOLYBDEN [Concomitant]
  10. INSULIN (INSULIN) [Concomitant]

REACTIONS (5)
  - Fatigue [None]
  - Nausea [None]
  - Renal failure acute [None]
  - Tubulointerstitial nephritis [None]
  - Renal tubular atrophy [None]
